FAERS Safety Report 5955281-X (Version None)
Quarter: 2008Q4

REPORT INFORMATION
  Report Type: 
  Country: None (occurrence: None)
  Receive Date: 20081117
  Receipt Date: 20081104
  Transmission Date: 20090506
  Serious: Yes (Other)
  Sender: FDA-Public Use
  Company Number: TW-GENENTECH-271071

PATIENT

DRUGS (2)
  1. BEVACIZUMAB [Suspect]
     Indication: METASTATIC NEOPLASM
     Dosage: 5 MG/KG, UNK
     Route: 065
  2. CHEMOTHERAPY NOS [Suspect]
     Indication: METASTATIC NEOPLASM

REACTIONS (1)
  - MUCOSAL INFLAMMATION [None]
